FAERS Safety Report 7023347-1 (Version None)
Quarter: 2010Q3

REPORT INFORMATION
  Report Type: 
  Country: None (occurrence: None)
  Receive Date: 20100930
  Receipt Date: 20100922
  Transmission Date: 20110219
  Serious: Yes (Hospitalization, Other)
  Sender: FDA-Public Use
  Company Number: US-ABBOTT-10P-163-0672680-00

PATIENT
  Sex: Female
  Weight: 75.818 kg

DRUGS (16)
  1. NIASPAN [Suspect]
     Indication: BLOOD CHOLESTEROL INCREASED
     Dates: start: 19981201, end: 19990101
  2. NIASPAN [Suspect]
     Indication: BLOOD TRIGLYCERIDES INCREASED
     Dates: start: 19990101, end: 20080601
  3. NIASPAN [Suspect]
     Dates: start: 20080601, end: 20100401
  4. PRAVACHOL [Suspect]
     Indication: PRODUCT USED FOR UNKNOWN INDICATION
     Dates: start: 20000101, end: 20010101
  5. ASCORBIC ACID [Suspect]
     Indication: BREAST CANCER
     Dates: start: 19990101
  6. VITAMIN E [Suspect]
     Indication: BREAST CANCER
     Dates: start: 19990101
  7. RAMIPRIL [Concomitant]
     Indication: HYPERTENSION
  8. ADVANTAGE [Concomitant]
     Indication: FLATULENCE
  9. VITAMIN D [Concomitant]
     Indication: HYPOVITAMINOSIS
  10. TRAMADOL HCL [Concomitant]
     Indication: NECK PAIN
  11. ZANAFLEX [Concomitant]
     Indication: NECK PAIN
  12. ECCHINACHEA [Concomitant]
     Indication: SINUS DISORDER
  13. APPLE CIDER VINEGAR PILL [Concomitant]
     Indication: ARTHRITIS
  14. GAS X [Concomitant]
     Indication: FLATULENCE
  15. XANAX [Concomitant]
     Indication: ANXIETY
  16. IBUPROFEN [Concomitant]
     Indication: HEADACHE

REACTIONS (13)
  - ANIMAL BITE [None]
  - BREAST CANCER [None]
  - DIPLOPIA [None]
  - DIZZINESS [None]
  - HEADACHE [None]
  - HEPATIC ENZYME INCREASED [None]
  - HYPERTENSION [None]
  - LOCALISED INFECTION [None]
  - LYMPHOEDEMA [None]
  - MITRAL VALVE PROLAPSE [None]
  - PRESYNCOPE [None]
  - SEPSIS [None]
  - WEIGHT DECREASED [None]
